FAERS Safety Report 23860783 (Version 1)
Quarter: 2024Q2

REPORT INFORMATION
  Report Type: Spontaneous
  Country: CA (occurrence: CA)
  Receive Date: 20240516
  Receipt Date: 20240516
  Transmission Date: 20240716
  Serious: Yes (Life-Threatening, Hospitalization)
  Sender: FDA-Public Use
  Company Number: None

PATIENT
  Sex: Female
  Weight: 58.51 kg

DRUGS (4)
  1. OZEMPIC [Suspect]
     Active Substance: SEMAGLUTIDE
     Indication: Bulimia nervosa
  2. OZEMPIC [Suspect]
     Active Substance: SEMAGLUTIDE
     Indication: Hyperphagia
     Dosage: 0.25 MG, QD
     Route: 058
  3. VITAMIN D NOS [Concomitant]
     Active Substance: VITAMIN D NOS
     Indication: Product used for unknown indication
     Dosage: UNK
  4. VYVANSE [Concomitant]
     Active Substance: LISDEXAMFETAMINE DIMESYLATE
     Indication: Product used for unknown indication
     Dosage: UNK

REACTIONS (12)
  - Abdominal pain [Recovering/Resolving]
  - Abdominal pain upper [Recovering/Resolving]
  - Ear swelling [Recovering/Resolving]
  - Hypersensitivity [Recovering/Resolving]
  - Hypoaesthesia oral [Recovering/Resolving]
  - Oral discomfort [Recovering/Resolving]
  - Palpitations [Recovering/Resolving]
  - Swelling face [Recovering/Resolving]
  - Paraesthesia oral [Recovering/Resolving]
  - Rash macular [Recovering/Resolving]
  - Pharyngeal swelling [Recovering/Resolving]
  - Product use in unapproved indication [Unknown]
